FAERS Safety Report 9329140 (Version 3)
Quarter: 2020Q1

REPORT INFORMATION
  Report Type: Spontaneous
  Country: US (occurrence: US)
  Receive Date: 20130604
  Receipt Date: 20200127
  Transmission Date: 20200409
  Serious: Yes (Other)
  Sender: FDA-Public Use
  Company Number: US-SANOFI-AVENTIS-2012SA073678

PATIENT
  Age: 79 Year
  Sex: Female
  Weight: 64 kg

DRUGS (2)
  1. LANTUS SOLOSTAR [Suspect]
     Active Substance: INSULIN GLARGINE
     Indication: TYPE 1 DIABETES MELLITUS
     Dosage: 9 IU,QD
     Route: 058
     Dates: start: 20100611
  2. APIDRA SOLOSTAR [Suspect]
     Active Substance: INSULIN GLULISINE
     Indication: TYPE 1 DIABETES MELLITUS
     Dosage: 12 TO 15 INTERNATIONAL UNITS PER DAY
     Route: 058
     Dates: start: 20100611

REACTIONS (13)
  - Feeling hot [Recovered/Resolved]
  - Dry throat [Unknown]
  - Macular degeneration [Unknown]
  - Injection site urticaria [Recovered/Resolved]
  - Cough [Unknown]
  - Pruritus [Recovered/Resolved]
  - Drug ineffective [Unknown]
  - Wheezing [Recovered/Resolved]
  - Inflammation [Recovered/Resolved]
  - Memory impairment [Unknown]
  - Visual impairment [Unknown]
  - Product storage error [Unknown]
  - Dyspnoea [Recovered/Resolved]

NARRATIVE: CASE EVENT DATE: 20121011
